FAERS Safety Report 4766720-4 (Version None)
Quarter: 2005Q3

REPORT INFORMATION
  Report Type: 
  Country: None (occurrence: None)
  Receive Date: 20050908
  Receipt Date: 20050824
  Transmission Date: 20060218
  Serious: Yes (Hospitalization, Other)
  Sender: FDA-Public Use
  Company Number: EM2005-0420

PATIENT

DRUGS (1)
  1. PROLEUKIN [Suspect]
     Dosage: 3 MIU/M2, QDX2.5WEEKS, SUBCUTANEOUS
     Route: 058

REACTIONS (2)
  - DIABETIC KETOACIDOSIS [None]
  - DISEASE PROGRESSION [None]
